FAERS Safety Report 6836139-0 (Version None)
Quarter: 2010Q3

REPORT INFORMATION
  Report Type: 
  Country: None (occurrence: None)
  Receive Date: 20100713
  Receipt Date: 20100708
  Transmission Date: 20110219
  Serious: Yes (Hospitalization)
  Sender: FDA-Public Use
  Company Number: CA-ROCHE-710769

PATIENT
  Sex: Female
  Weight: 65.3 kg

DRUGS (2)
  1. BEVACIZUMAB [Suspect]
     Indication: GLIOBLASTOMA
     Dosage: FORM: INFUSION.
     Route: 042
     Dates: start: 20100608
  2. DEXAMETHASONE ACETATE [Suspect]
     Indication: PRODUCT USED FOR UNKNOWN INDICATION
     Route: 065

REACTIONS (2)
  - BLOOD GLUCOSE FLUCTUATION [None]
  - BLOOD SODIUM ABNORMAL [None]
